FAERS Safety Report 5931268-8 (Version None)
Quarter: 2008Q4

REPORT INFORMATION
  Report Type: 
  Country: None (occurrence: None)
  Receive Date: 20081027
  Receipt Date: 20081023
  Transmission Date: 20090506
  Serious: Yes (Hospitalization)
  Sender: FDA-Public Use
  Company Number: PL-AVENTIS-200818385GDDC

PATIENT
  Age: 55 Year
  Sex: Male
  Weight: 87 kg

DRUGS (10)
  1. CODE UNBROKEN [Suspect]
     Route: 042
     Dates: start: 20080814, end: 20080814
  2. DOCETAXEL [Suspect]
     Route: 042
     Dates: start: 20080814, end: 20080814
  3. OXADOL [Concomitant]
  4. FLUTICASONE PROPIONATE [Concomitant]
  5. ERYTHROMYCIN [Concomitant]
  6. POLFILIN [Concomitant]
  7. MONONIT [Concomitant]
  8. MOLSIDOMINE [Concomitant]
  9. DOLTARD [Concomitant]
  10. POLPRAZOL [Concomitant]

REACTIONS (2)
  - CHRONIC OBSTRUCTIVE PULMONARY DISEASE [None]
  - NEUTROPENIA [None]
